FAERS Safety Report 7571173-7 (Version None)
Quarter: 2011Q2

REPORT INFORMATION
  Report Type: 
  Country: None (occurrence: None)
  Receive Date: 20110624
  Receipt Date: 20110620
  Transmission Date: 20111010
  Serious: Yes (Hospitalization)
  Sender: FDA-Public Use
  Company Number: FR-PFIZER INC-2011134901

PATIENT
  Age: 55 Year
  Sex: Male

DRUGS (1)
  1. VFEND [Suspect]
     Indication: CANDIDIASIS
     Dosage: 200 MG, ALTERNATE DAY
     Route: 048
     Dates: start: 20100101, end: 20100831

REACTIONS (3)
  - ECZEMA [None]
  - SKIN DISORDER [None]
  - MOUTH HAEMORRHAGE [None]
